FAERS Safety Report 4877216-3 (Version None)
Quarter: 2005Q4

REPORT INFORMATION
  Report Type: 
  Country: None (occurrence: None)
  Receive Date: 20051206
  Receipt Date: 20050928
  Transmission Date: 20060501
  Serious: No
  Sender: FDA-Public Use
  Company Number: USA0509109435

PATIENT
  Age: 61 Year
  Sex: Male

DRUGS (5)
  1. CYMBALTA [Suspect]
     Indication: NEUROPATHY PERIPHERAL
     Dosage: 30 MG IN THE MORNING
     Dates: start: 20050928
  2. NEURONTIN [Concomitant]
  3. ACIPHEX [Concomitant]
  4. ZESTRIL [Concomitant]
  5. KLONOPIN [Concomitant]

REACTIONS (5)
  - DECREASED ACTIVITY [None]
  - DIARRHOEA [None]
  - FEELING ABNORMAL [None]
  - NAUSEA [None]
  - SOMNOLENCE [None]
